FAERS Safety Report 6811366-7 (Version None)
Quarter: 2010Q2

REPORT INFORMATION
  Report Type: 
  Country: None (occurrence: None)
  Receive Date: 20100630
  Receipt Date: 20100114
  Transmission Date: 20101027
  Serious: No
  Sender: FDA-Public Use
  Company Number: US-AMGEN-KDL386568

PATIENT
  Sex: Male
  Weight: 75.8 kg

DRUGS (4)
  1. PROCRIT [Suspect]
     Indication: MYELODYSPLASTIC SYNDROME
     Dates: start: 20091103
  2. ACTOS [Concomitant]
  3. GLIPIZIDE [Concomitant]
  4. INSULIN [Concomitant]
     Dates: start: 20091001

REACTIONS (1)
  - BACK PAIN [None]
